FAERS Safety Report 12072304 (Version 1)
Quarter: 2016Q1

REPORT INFORMATION
  Report Type: Spontaneous
  Country: IT (occurrence: IT)
  Receive Date: 20160212
  Receipt Date: 20160212
  Transmission Date: 20160526
  Serious: Yes (Other)
  Sender: FDA-Public Use
  Company Number: IT-TEVA-632568ACC

PATIENT
  Age: 61 Year
  Sex: Female

DRUGS (2)
  1. MYOCET - 50 MG POLVERE E ADDITIVI PER CONCENTRATO PER DISPERSIONE LIPO [Suspect]
     Active Substance: DOXORUBICIN
     Indication: BREAST CANCER STAGE IV
     Dosage: 72 MG CYCLICAL
     Route: 042
     Dates: start: 20151008, end: 20151210
  2. ENDOXAN BAXTER - 1 G POLVERE PER SOLUZIONE INIETTABILE [Suspect]
     Active Substance: CYCLOPHOSPHAMIDE
     Indication: BREAST CANCER STAGE IV
     Dosage: 900 MG CYCLICAL
     Route: 042
     Dates: start: 20151008, end: 20151210

REACTIONS (2)
  - Pulmonary hypertension [Recovering/Resolving]
  - Ejection fraction decreased [None]

NARRATIVE: CASE EVENT DATE: 20151221
